FAERS Safety Report 9151151 (Version 1)
Quarter: 2013Q1

REPORT INFORMATION
  Report Type: Spontaneous
  Country: US (occurrence: US)
  Receive Date: 20130308
  Receipt Date: 20130308
  Transmission Date: 20140127
  Serious: Yes (Death, Other)
  Sender: FDA-Public Use
  Company Number: US-ASTELLAS-2013US000897

PATIENT
  Age: 78 Year
  Sex: Male

DRUGS (1)
  1. XTANDI [Suspect]
     Indication: PRODUCT USED FOR UNKNOWN INDICATION
     Dosage: 160 MG, UID/QD
     Route: 048

REACTIONS (8)
  - Death [Fatal]
  - Metastasis [Unknown]
  - Somnolence [Unknown]
  - Urine output decreased [Unknown]
  - Joint swelling [Unknown]
  - Local swelling [Unknown]
  - Fatigue [Unknown]
  - Diarrhoea [Unknown]
